FAERS Safety Report 9364134 (Version 1)
Quarter: 2013Q2

REPORT INFORMATION
  Report Type: Spontaneous
  Country: DE (occurrence: DE)
  Receive Date: 20130624
  Receipt Date: 20130624
  Transmission Date: 20140414
  Serious: Yes (Life-Threatening, Hospitalization)
  Sender: FDA-Public Use
  Company Number: DE-ELI_LILLY_AND_COMPANY-DE201306005725

PATIENT
  Age: 60 Year
  Sex: Male
  Weight: 60 kg

DRUGS (1)
  1. GEMZAR [Suspect]
     Dosage: 1000 MG, UNKNOWN
     Route: 042
     Dates: start: 20121016, end: 20130226

REACTIONS (1)
  - Cardiomyopathy [Recovering/Resolving]
